FAERS Safety Report 21403129 (Version 1)
Quarter: 2022Q4

REPORT INFORMATION
  Report Type: Spontaneous
  Country: US (occurrence: US)
  Receive Date: 20221003
  Receipt Date: 20221003
  Transmission Date: 20230113
  Serious: Yes (Other)
  Sender: FDA-Public Use
  Company Number: US-GSK-US2022139420

PATIENT

DRUGS (2)
  1. TRELEGY ELLIPTA [Suspect]
     Active Substance: FLUTICASONE FUROATE\UMECLIDINIUM BROMIDE\VILANTEROL TRIFENATATE
     Indication: Chronic obstructive pulmonary disease
     Dosage: 1 PUFF(S), QD, 100-62.5MCG USE 1 INHALATION BY MOUTH DAILY
     Dates: start: 201901
  2. CHOLESTEROL SUPPORT [Concomitant]
     Indication: Blood cholesterol
     Dosage: UNK

REACTIONS (1)
  - Ocular melanoma [Unknown]

NARRATIVE: CASE EVENT DATE: 20200201
